FAERS Safety Report 7315021-9 (Version None)
Quarter: 2011Q1

REPORT INFORMATION
  Report Type: 
  Country: None (occurrence: None)
  Receive Date: 20110225
  Receipt Date: 20100406
  Transmission Date: 20110831
  Serious: No
  Sender: FDA-Public Use
  Company Number: US-MYLANLABS-2010S1004082

PATIENT
  Age: 17 Year
  Sex: Male
  Weight: 62.6 kg

DRUGS (4)
  1. CLARAVIS [Suspect]
     Indication: ACNE
     Route: 048
     Dates: start: 20090915, end: 20100215
  2. AMNESTEEM [Suspect]
     Indication: ACNE
     Dates: start: 20090915, end: 20100215
  3. AMNESTEEM [Suspect]
     Dates: start: 20090915, end: 20100215
  4. CONCERTA [Concomitant]
     Dosage: ON WEEK DAYS

REACTIONS (2)
  - PAIN IN EXTREMITY [None]
  - FATIGUE [None]
